FAERS Safety Report 7473871-2 (Version None)
Quarter: 2011Q2

REPORT INFORMATION
  Report Type: 
  Country: None (occurrence: None)
  Receive Date: 20110511
  Receipt Date: 20110329
  Transmission Date: 20111010
  Serious: Yes (Hospitalization, Other)
  Sender: FDA-Public Use
  Company Number: US-BAYER-201039685NA

PATIENT
  Age: 39 Year
  Sex: Female
  Weight: 136 kg

DRUGS (1)
  1. YASMIN [Suspect]
     Indication: CONTRACEPTION
     Dosage: UNK
     Route: 048
     Dates: start: 20040701, end: 20080101

REACTIONS (6)
  - MIGRAINE WITH AURA [None]
  - SYNCOPE [None]
  - HEMIANOPIA [None]
  - TRANSIENT ISCHAEMIC ATTACK [None]
  - PARAESTHESIA [None]
  - SCINTILLATING SCOTOMA [None]
